FAERS Safety Report 6585784-9 (Version None)
Quarter: 2010Q1

REPORT INFORMATION
  Report Type: 
  Country: None (occurrence: None)
  Receive Date: 20100217
  Receipt Date: 20100209
  Transmission Date: 20100710
  Serious: Yes (Hospitalization)
  Sender: FDA-Public Use
  Company Number: US-GILEAD-2010-0027005

PATIENT
  Sex: Female
  Weight: 84.1 kg

DRUGS (12)
  1. LETAIRIS [Suspect]
     Indication: PULMONARY ARTERIAL HYPERTENSION
     Route: 048
     Dates: start: 20091020
  2. COUMADIN [Concomitant]
  3. LISINOPRIL [Concomitant]
  4. ZETIA [Concomitant]
  5. ASPIRIN [Concomitant]
  6. IMITREX [Concomitant]
  7. SINGULAIR [Concomitant]
  8. ADVIL [Concomitant]
  9. CALCIUM [Concomitant]
  10. FLEXERIL [Concomitant]
  11. TYLENOL-500 [Concomitant]
  12. MULTIPLE VITAMIN-PRO [Concomitant]

REACTIONS (1)
  - SURGERY [None]
